FAERS Safety Report 4790487-7 (Version None)
Quarter: 2005Q4

REPORT INFORMATION
  Report Type: 
  Country: None (occurrence: None)
  Receive Date: 20051005
  Receipt Date: 20050916
  Transmission Date: 20060501
  Serious: Yes (Other)
  Sender: FDA-Public Use
  Company Number: US_0509122259

PATIENT
  Age: 21 Year
  Sex: Female

DRUGS (2)
  1. PROZAC [Suspect]
     Indication: DEPRESSION
     Dosage: 40 MG
     Dates: start: 19950101, end: 20050101
  2. WELLBUTRIN [Concomitant]

REACTIONS (6)
  - ABNORMAL BEHAVIOUR [None]
  - ANGER [None]
  - DEPRESSION [None]
  - FEELING ABNORMAL [None]
  - NEOPLASM MALIGNANT [None]
  - SELF MUTILATION [None]
